FAERS Safety Report 6382438-9 (Version None)
Quarter: 2009Q3

REPORT INFORMATION
  Report Type: 
  Country: None (occurrence: None)
  Receive Date: 20090928
  Receipt Date: 20090928
  Transmission Date: 20100115
  Serious: Yes (Hospitalization)
  Sender: FDA-Public Use
  Company Number: None

PATIENT
  Sex: Female
  Weight: 8.74 kg

DRUGS (3)
  1. CYTARABINE [Suspect]
     Dosage: 478 MG
  2. DAUNORUBICIN HCL [Suspect]
     Dosage: 42 MG
  3. ETOPOSIDE [Suspect]
     Dosage: 140 MG

REACTIONS (12)
  - ACUTE RESPIRATORY DISTRESS SYNDROME [None]
  - EPISTAXIS [None]
  - GASTROINTESTINAL HAEMORRHAGE [None]
  - GENERAL PHYSICAL HEALTH DETERIORATION [None]
  - NEUTROPENIA [None]
  - NO THERAPEUTIC RESPONSE [None]
  - PANCYTOPENIA [None]
  - PNEUMONIA KLEBSIELLA [None]
  - STAPHYLOCOCCAL INFECTION [None]
  - STAPHYLOCOCCAL SEPSIS [None]
  - STRIDOR [None]
  - SYSTEMIC CANDIDA [None]
